FAERS Safety Report 7718707-7 (Version None)
Quarter: 2011Q3

REPORT INFORMATION
  Report Type: 
  Country: None (occurrence: None)
  Receive Date: 20110830
  Receipt Date: 20110818
  Transmission Date: 20111222
  Serious: Yes (Other)
  Sender: FDA-Public Use
  Company Number: CA-ELI_LILLY_AND_COMPANY-CA201108005771

PATIENT
  Sex: Male

DRUGS (12)
  1. ZYPREXA [Suspect]
     Dosage: 20 MG, EACH EVENING
  2. LUVOX [Concomitant]
  3. TOPIRAMATE [Concomitant]
  4. SERAX [Concomitant]
  5. ZYPREXA [Suspect]
     Indication: SCHIZOPHRENIA, PARANOID TYPE
     Dosage: 10 MG, EACH EVENING
  6. ZYPREXA [Suspect]
     Dosage: 15 MG, EACH EVENING
  7. VALIUM [Concomitant]
  8. METHADONE HCL [Concomitant]
  9. RISPERDAL [Concomitant]
  10. HALOPERIDOL [Concomitant]
  11. MODECATE [Concomitant]
  12. COGENTIN [Concomitant]

REACTIONS (9)
  - LYMPHOCYTOSIS [None]
  - TYPE 2 DIABETES MELLITUS [None]
  - VISION BLURRED [None]
  - HEPATITIS C [None]
  - HEPATIC STEATOSIS [None]
  - BLOOD CHOLESTEROL INCREASED [None]
  - BLOOD TRIGLYCERIDES INCREASED [None]
  - ESSENTIAL HYPERTENSION [None]
  - CORONARY ARTERY DISEASE [None]
